FAERS Safety Report 7318422-8 (Version None)
Quarter: 2011Q1

REPORT INFORMATION
  Report Type: 
  Country: None (occurrence: None)
  Receive Date: 20110228
  Receipt Date: 20110216
  Transmission Date: 20110831
  Serious: Yes (Hospitalization, Other)
  Sender: FDA-Public Use
  Company Number: DE-ELI_LILLY_AND_COMPANY-DE201102004560

PATIENT
  Sex: Male

DRUGS (6)
  1. FORTEO [Suspect]
     Indication: OSTEOPOROSIS
     Dosage: UNK, UNKNOWN
     Route: 058
     Dates: start: 20100517
  2. FRUBIASE CALCIUM FORTE [Concomitant]
  3. OPIPRAMOL [Concomitant]
  4. NICOTINE [Concomitant]
  5. TILIDIN [Concomitant]
  6. MARCUMAR [Concomitant]

REACTIONS (2)
  - ACETABULUM FRACTURE [None]
  - LOSS OF CONSCIOUSNESS [None]
